FAERS Safety Report 8380115-6 (Version None)
Quarter: 2012Q1

REPORT INFORMATION
  Report Type: 
  Country: None (occurrence: None)
  Receive Date: 20120323
  Receipt Date: 20110404
  Transmission Date: 20120608
  Serious: Yes (Other)
  Sender: FDA-Public Use
  Company Number: 163-21880-11040488

PATIENT
  Sex: Male

DRUGS (2)
  1. REVLIMID [Suspect]
     Indication: MULTIPLE MYELOMA
     Dosage: 10 MG, DAYS 1-21 EVERY 28 DAYS, PO
     Route: 048
     Dates: start: 20091222
  2. TRANSFUSION (BLOOD CELLS, PACKED HUMAN) (INJECTION) [Concomitant]

REACTIONS (1)
  - BLOOD COUNT ABNORMAL [None]
